APPROVED DRUG PRODUCT: POTASSIUM CHLORIDE 0.15% IN SODIUM CHLORIDE 0.45%
Active Ingredient: POTASSIUM CHLORIDE; SODIUM CHLORIDE
Strength: 150MG/100ML;450MG/100ML
Dosage Form/Route: INJECTABLE;INJECTION
Application: A212347 | Product #001 | TE Code: AP
Applicant: FRESENIUS KABI USA LLC
Approved: Sep 17, 2020 | RLD: No | RS: No | Type: RX